FAERS Safety Report 6299034-4 (Version None)
Quarter: 2009Q3

REPORT INFORMATION
  Report Type: 
  Country: None (occurrence: None)
  Receive Date: 20090804
  Receipt Date: 20090727
  Transmission Date: 20100115
  Serious: Yes (Other)
  Sender: FDA-Public Use
  Company Number: 2008JP005154

PATIENT
  Age: 6 Year
  Sex: Male
  Weight: 27 kg

DRUGS (26)
  1. FUNGUARD          (MICAFUNGIN INJECTION) [Suspect]
     Indication: INFECTION PROPHYLAXIS
     Dosage: 50 MG, 180 MG, UID/QD, IV DRIP, 180 MG, UID/QD, IV DRIP
     Route: 041
     Dates: start: 20080227, end: 20080321
  2. FUNGUARD          (MICAFUNGIN INJECTION) [Suspect]
     Indication: INFECTION PROPHYLAXIS
     Dosage: 50 MG, 180 MG, UID/QD, IV DRIP, 180 MG, UID/QD, IV DRIP
     Route: 041
     Dates: start: 20080322, end: 20080401
  3. FUNGUARD          (MICAFUNGIN INJECTION) [Suspect]
     Indication: INFECTION PROPHYLAXIS
     Dosage: 50 MG, 180 MG, UID/QD, IV DRIP, 180 MG, UID/QD, IV DRIP
     Route: 041
     Dates: start: 20080411, end: 20080516
  4. AMBISOME [Concomitant]
  5. VFEND [Concomitant]
  6. VFEND [Concomitant]
  7. VEPESID [Concomitant]
  8. CYCLOPHOSPHAMIDE [Concomitant]
  9. METHOTREXATE [Concomitant]
  10. PROGRAF [Concomitant]
  11. ..................... [Concomitant]
  12. NEUTROGIN (LENOGRASTIM) [Concomitant]
  13. IMMUNE GLOBULIN INTRAVENOUS (HUMAN) [Concomitant]
  14. FIRSTCIN (CEFOZOPRAN HYDROCHLORIDE) [Concomitant]
  15. MEROPEN (MEROPENEM TRIHYDRATE) [Concomitant]
  16. MINOCYCLINE HCL [Concomitant]
  17. TARGOCID [Concomitant]
  18. ORGARAN [Concomitant]
  19. ALBUMIN (HUMAN) [Concomitant]
  20. SULFAMETHOXAZOLE AND TRIMETHOPRIM [Concomitant]
  21. ZOVIRAX [Concomitant]
  22. NORFLOXACIN [Concomitant]
  23. COCARL [Concomitant]
  24. BIOFERMIN (STREPTOCOCCUS FAECALIS, BACILLUS SUBTILIS, LACTOBACILLUS AC [Concomitant]
  25. KYTRIL [Concomitant]
  26. PLATELETS [Concomitant]

REACTIONS (8)
  - BRONCHITIS [None]
  - DIARRHOEA [None]
  - FEBRILE NEUTROPENIA [None]
  - HYPOALBUMINAEMIA [None]
  - PATHOGEN RESISTANCE [None]
  - STEM CELL TRANSPLANT [None]
  - THROMBOTIC MICROANGIOPATHY [None]
  - VOMITING [None]
